FAERS Safety Report 24540848 (Version 1)
Quarter: 2024Q4

REPORT INFORMATION
  Report Type: Spontaneous
  Country: US (occurrence: US)
  Receive Date: 20241023
  Receipt Date: 20241023
  Transmission Date: 20250114
  Serious: Yes (Hospitalization, Other)
  Sender: TEVA
  Company Number: US-TEVA-VS-3255426

PATIENT
  Age: 70 Year
  Sex: Female

DRUGS (6)
  1. AZITHROMYCIN [Suspect]
     Active Substance: AZITHROMYCIN
     Indication: Babesiosis
     Route: 065
  2. RITUXIMAB [Suspect]
     Active Substance: RITUXIMAB
     Indication: Rheumatoid arthritis
     Route: 065
  3. METHOTREXATE [Suspect]
     Active Substance: METHOTREXATE
     Indication: Rheumatoid arthritis
     Route: 065
  4. QUININE [Concomitant]
     Active Substance: QUININE
     Indication: Babesiosis
     Route: 065
  5. ATOVAQUONE [Suspect]
     Active Substance: ATOVAQUONE
     Indication: Babesiosis
     Route: 065
  6. CLINDAMYCIN [Concomitant]
     Active Substance: CLINDAMYCIN
     Indication: Babesiosis
     Route: 065

REACTIONS (2)
  - Babesiosis [Recovering/Resolving]
  - Drug resistance [Unknown]
